FAERS Safety Report 6854995-7 (Version None)
Quarter: 2010Q3

REPORT INFORMATION
  Report Type: 
  Country: None (occurrence: None)
  Receive Date: 20100717
  Receipt Date: 20080411
  Transmission Date: 20110219
  Serious: Yes (Other)
  Sender: FDA-Public Use
  Company Number: US-PFIZER INC-2007103322

PATIENT
  Sex: Male
  Weight: 83 kg

DRUGS (19)
  1. CHANTIX [Suspect]
     Indication: TOBACCO ABUSE
     Dates: start: 20070925, end: 20071002
  2. CHANTIX [Interacting]
     Indication: ANGIOPATHY
  3. DRUG, UNSPECIFIED [Interacting]
  4. FENTANYL [Interacting]
  5. AMITRIPTYLINE HYDROCHLORIDE [Concomitant]
  6. ALBUTEROL [Concomitant]
  7. ACETYLSALICYLIC ACID [Concomitant]
  8. CLOBETASOL PROPIONATE [Concomitant]
  9. CYCLOBENZAPRINE [Concomitant]
  10. HYDROXYZINE PAMOATE [Concomitant]
  11. INSULIN [Concomitant]
  12. LISINOPRIL [Concomitant]
  13. METOPROLOL TARTRATE [Concomitant]
  14. MIRTAZAPINE [Concomitant]
  15. MULTI-VITAMINS [Concomitant]
  16. OMEPRAZOLE [Concomitant]
  17. RANITIDINE HYDROCHLORIDE [Concomitant]
  18. SIMVASTATIN [Concomitant]
  19. TRAMADOL [Concomitant]

REACTIONS (8)
  - DEPRESSION [None]
  - DRUG INTERACTION [None]
  - GLYCOSYLATED HAEMOGLOBIN INCREASED [None]
  - PAIN [None]
  - POST-TRAUMATIC STRESS DISORDER [None]
  - SUICIDAL IDEATION [None]
  - TRANSAMINASES INCREASED [None]
  - VISUAL ACUITY REDUCED [None]
